FAERS Safety Report 17112681 (Version 1)
Quarter: 2019Q4

REPORT INFORMATION
  Report Type: Spontaneous
  Country: US (occurrence: US)
  Receive Date: 20191204
  Receipt Date: 20191204
  Transmission Date: 20200122
  Serious: No
  Sender: FDA-Public Use
  Company Number: US-PTC THERAPEUTICS, INC.-US-2019PTC001385

PATIENT
  Age: 21 Year
  Sex: Male

DRUGS (1)
  1. EMFLAZA [Suspect]
     Active Substance: DEFLAZACORT
     Indication: DUCHENNE MUSCULAR DYSTROPHY
     Dosage: 108 MG, QD
     Route: 048
     Dates: start: 20190811

REACTIONS (7)
  - Urine output increased [Not Recovered/Not Resolved]
  - Acne [Not Recovered/Not Resolved]
  - Increased appetite [Not Recovered/Not Resolved]
  - Micturition urgency [Not Recovered/Not Resolved]
  - Rash [Not Recovered/Not Resolved]
  - Anger [Recovered/Resolved]
  - Cushingoid [Not Recovered/Not Resolved]

NARRATIVE: CASE EVENT DATE: 20190825
